FAERS Safety Report 7553478-9 (Version None)
Quarter: 2011Q2

REPORT INFORMATION
  Report Type: 
  Country: None (occurrence: None)
  Receive Date: 20110617
  Receipt Date: 20110110
  Transmission Date: 20111010
  Serious: Yes (Hospitalization)
  Sender: FDA-Public Use
  Company Number: US-BAYER-201037905NA

PATIENT
  Age: 21 Year
  Sex: Female
  Weight: 66 kg

DRUGS (8)
  1. VITAMIN E [Concomitant]
     Route: 048
  2. CLARITIN [Concomitant]
     Dosage: 1 /1, OM
     Route: 048
  3. VITAMIN B [Concomitant]
  4. YAZ [Suspect]
     Route: 048
     Dates: start: 20051201, end: 20090115
  5. YASMIN [Suspect]
     Indication: CONTRACEPTION
     Route: 048
     Dates: start: 20051201, end: 20090101
  6. ASCORBIC ACID [Concomitant]
  7. ACETYL SALICYLIC ACID COMPOUND TAB [Concomitant]
     Dosage: 325 MG, PRN
     Route: 048
  8. YASMIN [Suspect]
     Indication: AMENORRHOEA

REACTIONS (4)
  - ABDOMINAL PAIN UPPER [None]
  - CHOLELITHIASIS [None]
  - GALLBLADDER DISORDER [None]
  - CHOLECYSTITIS CHRONIC [None]
